FAERS Safety Report 25707406 (Version 1)
Quarter: 2025Q3

REPORT INFORMATION
  Report Type: Spontaneous
  Country: CN (occurrence: CN)
  Receive Date: 20250820
  Receipt Date: 20250820
  Transmission Date: 20251021
  Serious: Yes (Death, Hospitalization, Other)
  Sender: SCIEGEN PHARMACEUTICALS INC
  Company Number: CN-SCIEGENP-2025SCLIT00231

PATIENT
  Age: 62 Year
  Sex: Female

DRUGS (2)
  1. CLOPIDOGREL [Suspect]
     Active Substance: CLOPIDOGREL BISULFATE
     Indication: Intracranial aneurysm
     Route: 065
  2. ASPIRIN [Concomitant]
     Active Substance: ASPIRIN
     Indication: Intracranial aneurysm
     Route: 065

REACTIONS (1)
  - Carotid artery thrombosis [Fatal]
